FAERS Safety Report 4312221-7 (Version None)
Quarter: 2004Q1

REPORT INFORMATION
  Report Type: 
  Country: None (occurrence: None)
  Receive Date: 20040305
  Receipt Date: 20031015
  Transmission Date: 20041129
  Serious: Yes (Disabling)
  Sender: FDA-Public Use
  Company Number: WAES 0310USA02354

PATIENT
  Age: 61 Year
  Sex: Male
  Weight: 60 kg

DRUGS (3)
  1. FLUVASTATIN SODIUM [Concomitant]
     Dates: start: 19930608
  2. MEVACOR [Suspect]
     Indication: TYPE IIA HYPERLIPIDAEMIA
     Route: 048
     Dates: start: 19900710, end: 19930608
  3. MEVACOR [Suspect]
     Indication: BLOOD CHOLESTEROL INCREASED
     Route: 048
     Dates: start: 19900710, end: 19930608

REACTIONS (3)
  - ATAXIA [None]
  - GAIT DISTURBANCE [None]
  - VESTIBULAR DISORDER [None]
